FAERS Safety Report 10671482 (Version 1)
Quarter: 2014Q4

REPORT INFORMATION
  Report Type: Spontaneous
  Country: TR (occurrence: TR)
  Receive Date: 20141223
  Receipt Date: 20141223
  Transmission Date: 20150529
  Serious: Yes (Other)
  Sender: FDA-Public Use
  Company Number: TR-NOVOPROD-433545

PATIENT
  Age: 9 Year
  Sex: Female
  Weight: 37 kg

DRUGS (1)
  1. NORDITROPIN [Suspect]
     Active Substance: SOMATROPIN
     Indication: GROWTH HORMONE DEFICIENCY
     Dosage: 0.9 MG, QD
     Route: 058
     Dates: start: 20130530, end: 20140617

REACTIONS (1)
  - Cushing^s syndrome [Unknown]

NARRATIVE: CASE EVENT DATE: 20140617
